FAERS Safety Report 5132325-9 (Version None)
Quarter: 2006Q4

REPORT INFORMATION
  Report Type: 
  Country: None (occurrence: None)
  Receive Date: 20061023
  Receipt Date: 20010820
  Transmission Date: 20070319
  Serious: Yes (Hospitalization, Other)
  Sender: FDA-Public Use
  Company Number: PHFR2001GB02414

PATIENT
  Age: 47 Year
  Sex: Female

DRUGS (1)
  1. CLOZARIL [Suspect]
     Indication: SCHIZOPHRENIA
     Dosage: 300MG DAILY
     Route: 048
     Dates: start: 19980715

REACTIONS (4)
  - BREAST CANCER [None]
  - HYSTERECTOMY [None]
  - MASTECTOMY [None]
  - WHITE BLOOD CELL COUNT DECREASED [None]
